FAERS Safety Report 23691336 (Version 1)
Quarter: 2024Q2

REPORT INFORMATION
  Report Type: Other
  Country: US (occurrence: None)
  Receive Date: 20240401
  Receipt Date: 20240401
  Transmission Date: 20240716
  Serious: Yes (Other)
  Sender: FDA-Public Use
  Company Number: US-ROCHE-3534643

PATIENT
  Age: 69 Year
  Sex: Male

DRUGS (1)
  1. COTELLIC [Suspect]
     Active Substance: COBIMETINIB
     Indication: Malignant melanoma
     Dosage: TAKE 2 TABLETS
     Route: 048

REACTIONS (1)
  - Renal failure [Unknown]
